FAERS Safety Report 15367402 (Version 1)
Quarter: 2018Q3

REPORT INFORMATION
  Report Type: Spontaneous
  Country: US (occurrence: US)
  Receive Date: 20180904
  Receipt Date: 20180904
  Transmission Date: 20181010
  Serious: No
  Sender: FDA-Public Use
  Company Number: None

PATIENT
  Age: 59 Year
  Sex: Female

DRUGS (1)
  1. AMPYRA [Suspect]
     Active Substance: DALFAMPRIDINE
     Indication: MULTIPLE SCLEROSIS

REACTIONS (4)
  - Glycosylated haemoglobin increased [None]
  - Urine leukocyte esterase positive [None]
  - Urine analysis abnormal [None]
  - Red blood cells urine positive [None]

NARRATIVE: CASE EVENT DATE: 20180830
